FAERS Safety Report 5232498-3 (Version None)
Quarter: 2007Q1

REPORT INFORMATION
  Report Type: 
  Country: None (occurrence: None)
  Receive Date: 20070206
  Receipt Date: 20070206
  Transmission Date: 20070707
  Serious: No
  Sender: FDA-Public Use
  Company Number: None

PATIENT
  Sex: Female
  Weight: 46.7 kg

DRUGS (4)
  1. CISPLATIN [Suspect]
     Indication: ENDOMETRIAL CANCER RECURRENT
     Dosage: 69.7 MG CDDP: 50MG/M2 50MG/M2 DAY 1
  2. DOXORUBICIN HYDROCHLORIDE [Suspect]
     Dosage: 62.7MG ADM:45MG/M2 45MG/M2 IV DAY 1
     Route: 042
  3. TAXOL [Suspect]
     Dosage: 223 MG 3HR 160MG/M2 DAY 2
  4. G-CSF (FILGRASTIM, AMGEN)(614629) [Concomitant]

REACTIONS (1)
  - NEUTROPENIA [None]
